FAERS Safety Report 18252105 (Version 1)
Quarter: 2020Q3

REPORT INFORMATION
  Report Type: Spontaneous
  Country: US (occurrence: US)
  Receive Date: 20200910
  Receipt Date: 20200910
  Transmission Date: 20201103
  Serious: No
  Sender: FDA-Public Use
  Company Number: US-FARMAPROD-202001-0122

PATIENT
  Age: 63 Year
  Sex: Male

DRUGS (4)
  1. COSOPT [Concomitant]
     Active Substance: DORZOLAMIDE HYDROCHLORIDE\TIMOLOL MALEATE
  2. POLYTRIM [Suspect]
     Active Substance: POLYMYXIN B SULFATE\TRIMETHOPRIM SULFATE
     Indication: CONTACT LENS THERAPY
     Dates: start: 20200120, end: 20200324
  3. OXERVATE [Suspect]
     Active Substance: CENEGERMIN-BKBJ
     Indication: NEUROTROPHIC KERATOPATHY
     Route: 047
     Dates: start: 20200118, end: 20200313
  4. ALPHAGAN P [Concomitant]
     Active Substance: BRIMONIDINE TARTRATE

REACTIONS (1)
  - Eye pain [Recovered/Resolved]

NARRATIVE: CASE EVENT DATE: 20200120
